FAERS Safety Report 8914227 (Version 3)
Quarter: 2013Q1

REPORT INFORMATION
  Report Type: Spontaneous
  Country: US (occurrence: US)
  Receive Date: 20121119
  Receipt Date: 20130201
  Transmission Date: 20140127
  Serious: Yes (Other)
  Sender: FDA-Public Use
  Company Number: US-AMGEN-USASP2012073234

PATIENT
  Age: 72 Year
  Sex: Female

DRUGS (3)
  1. ENBREL [Suspect]
     Indication: RHEUMATOID ARTHRITIS
     Dosage: 50 MG, QWK
     Dates: start: 20110426
  2. ENBREL [Suspect]
     Indication: AUTOIMMUNE ARTHRITIS
  3. METHOTREXATE                       /00113802/ [Concomitant]
     Dosage: 7.5 UNK, UNK

REACTIONS (18)
  - Gallbladder neoplasm [Not Recovered/Not Resolved]
  - Haemangioma of liver [Not Recovered/Not Resolved]
  - Abdominal pain [Not Recovered/Not Resolved]
  - Abdominal distension [Not Recovered/Not Resolved]
  - Osteopenia [Not Recovered/Not Resolved]
  - Scar [Not Recovered/Not Resolved]
  - Lymphoedema [Not Recovered/Not Resolved]
  - Diverticulum [Not Recovered/Not Resolved]
  - Spinal osteoarthritis [Not Recovered/Not Resolved]
  - Scoliosis [Not Recovered/Not Resolved]
  - Pain [Recovered/Resolved]
  - Hyperplastic cholecystopathy [Not Recovered/Not Resolved]
  - Joint stiffness [Not Recovered/Not Resolved]
  - Red blood cell sedimentation rate increased [Recovered/Resolved]
  - Injection site bruising [Not Recovered/Not Resolved]
  - Herpes zoster [Not Recovered/Not Resolved]
  - Injection site swelling [Not Recovered/Not Resolved]
  - Chest pain [Recovered/Resolved]
